FAERS Safety Report 10471077 (Version 2)
Quarter: 2014Q4

REPORT INFORMATION
  Report Type: Report from Study
  Country: KR (occurrence: KR)
  Receive Date: 20140923
  Receipt Date: 20141007
  Transmission Date: 20150528
  Serious: No
  Sender: FDA-Public Use
  Company Number: PHHY2014KR117462

PATIENT
  Age: 76 Year
  Sex: Male

DRUGS (1)
  1. TASIGNA [Suspect]
     Active Substance: NILOTINIB
     Indication: CHRONIC MYELOID LEUKAEMIA
     Dosage: 300 MG, BID (ONE CAPSULE IN MORNING AT 7 AM AND ONE IN EVENING AT 4 PM)
     Route: 048
     Dates: start: 20140519, end: 20140923

REACTIONS (2)
  - Chromosome analysis abnormal [Recovered/Resolved]
  - Diarrhoea [Not Recovered/Not Resolved]

NARRATIVE: CASE EVENT DATE: 2014
